FAERS Safety Report 6461854-0 (Version None)
Quarter: 2009Q4

REPORT INFORMATION
  Report Type: 
  Country: None (occurrence: None)
  Receive Date: 20091130
  Receipt Date: 20091118
  Transmission Date: 20100525
  Serious: Yes (Other)
  Sender: FDA-Public Use
  Company Number: PHHY2009JP51619

PATIENT
  Sex: Female

DRUGS (5)
  1. GLEEVEC [Suspect]
     Indication: GASTROINTESTINAL STROMAL TUMOUR
     Dosage: 400 MG/DAY
     Route: 048
  2. GLEEVEC [Suspect]
     Dosage: 200 MG/DAY
     Route: 048
  3. GLEEVEC [Suspect]
     Dosage: 300 MG/DAY
     Route: 048
  4. GLEEVEC [Suspect]
     Dosage: 400 MG/DAY
     Route: 048
  5. GLEEVEC [Suspect]
     Dosage: 600 MG/DAY
     Route: 048

REACTIONS (7)
  - COLON OPERATION [None]
  - DRUG ERUPTION [None]
  - DRUG INEFFECTIVE [None]
  - MALIGNANT NEOPLASM PROGRESSION [None]
  - METASTASES TO LIVER [None]
  - NEOPLASM RECURRENCE [None]
  - SMALL INTESTINE OPERATION [None]
